FAERS Safety Report 12732773 (Version 4)
Quarter: 2017Q3

REPORT INFORMATION
  Report Type: Spontaneous
  Country: IN (occurrence: IN)
  Receive Date: 20160912
  Receipt Date: 20170830
  Transmission Date: 20171127
  Serious: Yes (Hospitalization)
  Sender: FDA-Public Use
  Company Number: IN-ABBVIE-16P-078-1724832-00

PATIENT
  Age: 36 Year
  Sex: Male

DRUGS (4)
  1. AMITRIPTYLINE (AMITRIPTYLINE HYDROCHLORIDE) [Suspect]
     Active Substance: AMITRIPTYLINE HYDROCHLORIDE
     Indication: MIGRAINE
     Route: 065
  2. SODIUM VALPROATE [Suspect]
     Active Substance: VALPROATE SODIUM
     Indication: MIGRAINE
     Route: 065
  3. ONDANSETRON. [Suspect]
     Active Substance: ONDANSETRON
     Indication: MIGRAINE
     Route: 065
  4. AMITRIPTYLINE (AMITRIPTYLINE HYDROCHLORIDE) [Suspect]
     Active Substance: AMITRIPTYLINE HYDROCHLORIDE
     Indication: MIGRAINE

REACTIONS (19)
  - Stupor [Recovered/Resolved]
  - Hyperreflexia [Recovered/Resolved]
  - Tremor [Recovered/Resolved]
  - Electroencephalogram abnormal [Recovered/Resolved]
  - Clonus [Recovered/Resolved]
  - Agitation [Recovered/Resolved]
  - Hyperhidrosis [Recovered/Resolved]
  - Hypertension [Recovered/Resolved]
  - Tachycardia [Recovered/Resolved]
  - Condition aggravated [Recovered/Resolved]
  - Disorientation [Recovered/Resolved]
  - Pleocytosis [Recovered/Resolved]
  - Muscle rigidity [Recovered/Resolved]
  - Serotonin syndrome [Recovered/Resolved]
  - Leukocytosis [Recovered/Resolved]
  - Off label use [Recovered/Resolved]
  - Confusional state [Recovered/Resolved]
  - Pyrexia [Recovered/Resolved]
  - Encephalopathy [Recovered/Resolved]
